FAERS Safety Report 14943111 (Version 1)
Quarter: 2018Q2

REPORT INFORMATION
  Report Type: Spontaneous
  Country: BR (occurrence: BR)
  Receive Date: 20180528
  Receipt Date: 20180528
  Transmission Date: 20180711
  Serious: Yes (Other)
  Sender: FDA-Public Use
  Company Number: BR-ABBVIE-18P-020-2264540-00

PATIENT
  Sex: Female
  Weight: 12 kg

DRUGS (4)
  1. SABRIL [Concomitant]
     Active Substance: VIGABATRIN
     Dosage: DAILY DOSAGE: 1.5 TABLET, TWICE A DAY, 1 IN THE MORNING / 0.5 AT NIGHT
  2. DEPAKOTE [Suspect]
     Active Substance: DIVALPROEX SODIUM
     Indication: SEIZURE
     Dosage: DAILY DOSAGE: 2 CAPSULES, TWICE A DAY, 7 A.M./ 7 P.M.
     Route: 048
  3. SABRIL [Concomitant]
     Active Substance: VIGABATRIN
     Indication: SEIZURE
     Dosage: DAILY DOSAGE: 0.5 TABLET, TWICE A DAY, MORNING/ END OF THE DAY
     Dates: start: 2017
  4. DEPAKOTE [Suspect]
     Active Substance: DIVALPROEX SODIUM
     Route: 048
     Dates: start: 2017, end: 2017

REACTIONS (3)
  - Seizure [Recovered/Resolved]
  - Product use issue [Unknown]
  - Off label use [Unknown]

NARRATIVE: CASE EVENT DATE: 2017
